FAERS Safety Report 4655619-X (Version None)
Quarter: 2005Q2

REPORT INFORMATION
  Report Type: 
  Country: None (occurrence: None)
  Receive Date: 20050505
  Receipt Date: 20050419
  Transmission Date: 20051028
  Serious: Yes (Hospitalization, Other)
  Sender: FDA-Public Use
  Company Number: USA050188760

PATIENT
  Age: 55 Year
  Sex: Male

DRUGS (8)
  1. HUMATROPE [Suspect]
     Indication: GROWTH HORMONE DEFICIENCY
     Dates: start: 20040801
  2. HYDROCORTISONE [Concomitant]
  3. THYROXINE (LEVOTHYROXINE SODIUM) [Concomitant]
  4. ANDROGEL [Concomitant]
  5. DDAVP (DESMOPRESSIN ACETATE) [Concomitant]
  6. GEMFIBROZIL [Concomitant]
  7. DILANTIN [Concomitant]
  8. MODAFINIL [Concomitant]

REACTIONS (6)
  - CEREBROVASCULAR ACCIDENT [None]
  - CRANIOPHARYNGIOMA [None]
  - GRAND MAL CONVULSION [None]
  - MEDICAL DEVICE COMPLICATION [None]
  - NEOPLASM RECURRENCE [None]
  - PHARMACEUTICAL PRODUCT COMPLAINT [None]
